FAERS Safety Report 8683140 (Version 3)
Quarter: 2012Q4

REPORT INFORMATION
  Report Type: Report from Study
  Country: AU (occurrence: AU)
  Receive Date: 20120726
  Receipt Date: 20121018
  Transmission Date: 20130627
  Serious: Yes (Life-Threatening)
  Sender: FDA-Public Use
  Company Number: AU-009507513-1207AUS008501

PATIENT
  Age: 63 Year
  Sex: Male
  Weight: 72.2 kg

DRUGS (3)
  1. VICTRELIS 200 MG [Suspect]
     Indication: HEPATIC CIRRHOSIS
     Dosage: 2.6 g, qd
     Route: 048
     Dates: start: 20120427, end: 20120704
  2. PEGATRON [Suspect]
     Indication: HEPATIC CIRRHOSIS
     Dosage: UNK
  3. METHADONE HYDROCHLORIDE [Concomitant]
     Indication: DRUG DEPENDENCE
     Dosage: 100 mg, UNK
     Route: 048

REACTIONS (4)
  - Pulmonary embolism [Unknown]
  - Chest pain [Unknown]
  - Palpitations [Unknown]
  - Dyspnoea [Unknown]
